FAERS Safety Report 14998858 (Version 1)
Quarter: 2018Q2

REPORT INFORMATION
  Report Type: Spontaneous
  Country: DE (occurrence: DE)
  Receive Date: 20180612
  Receipt Date: 20180612
  Transmission Date: 20180711
  Serious: Yes (Hospitalization)
  Sender: FDA-Public Use
  Company Number: DE-TEVA-2018-DE-905366

PATIENT
  Age: 59 Year
  Sex: Male
  Weight: 88 kg

DRUGS (13)
  1. CEFUROXIM [Concomitant]
     Active Substance: CEFUROXIME
     Dosage: 1-0-1-0,
     Route: 048
  2. COTRIM [Concomitant]
     Active Substance: SULFAMETHOXAZOLE\TRIMETHOPRIM
     Dosage: 800/160 MG, BY SCHEME,
     Route: 048
  3. LINEZOLID. [Concomitant]
     Active Substance: LINEZOLID
     Dosage: 1-0-1-0,
     Route: 048
  4. ACICLOVIR [Concomitant]
     Active Substance: ACYCLOVIR
     Dosage: 1-1-1-0,
     Route: 048
  5. POSACONAZOLE [Concomitant]
     Active Substance: POSACONAZOLE
     Dosage: 300 MILLIGRAM DAILY;  3-0-0-0,
     Route: 048
  6. PREDNISOLONE. [Suspect]
     Active Substance: PREDNISOLONE
     Dosage: 15 MILLIGRAM DAILY; , 1-0-0-0,
     Route: 048
  7. TACROLIMUS. [Suspect]
     Active Substance: TACROLIMUS
     Dosage: 3 MILLIGRAM DAILY;  1-0-0-0,
     Route: 048
  8. ENOXAPARIN [Concomitant]
     Active Substance: ENOXAPARIN
     Dosage: 1-0-1-0, INJECTION/INFUSION SOLUTION
     Route: 058
  9. METOPROLOL. [Concomitant]
     Active Substance: METOPROLOL
     Dosage: , 1-0-1-0,
     Route: 048
  10. AMLODIPINE [Concomitant]
     Active Substance: AMLODIPINE BESYLATE
     Dosage: 2.5 MILLIGRAM DAILY;  0-0-1-0,
     Route: 048
  11. MAGNESIUM [Concomitant]
     Active Substance: MAGNESIUM
     Dosage: 90 MG, 2-2-2-0, DRAGEES
     Route: 048
  12. BUDESONIDE. [Concomitant]
     Active Substance: BUDESONIDE
     Dosage: 1-0-1-0,
     Route: 048
  13. PANTOPRAZOL [Concomitant]
     Active Substance: PANTOPRAZOLE SODIUM
     Dosage: 40 MILLIGRAM DAILY;  0-1-0-0,
     Route: 048

REACTIONS (4)
  - Pyrexia [Unknown]
  - Back pain [Unknown]
  - B-cell lymphoma [Unknown]
  - Psoas abscess [Unknown]
